FAERS Safety Report 4845380-8 (Version None)
Quarter: 2005Q4

REPORT INFORMATION
  Report Type: 
  Country: None (occurrence: None)
  Receive Date: 20051125
  Receipt Date: 20051111
  Transmission Date: 20060501
  Serious: Yes (Death)
  Sender: FDA-Public Use
  Company Number: GB200511000189

PATIENT
  Age: 70 Year
  Sex: Female

DRUGS (1)
  1. CYMBALTA [Suspect]
     Dosage: 60 MG, DAILY (1/D)

REACTIONS (2)
  - DEPRESSION [None]
  - SUDDEN DEATH [None]
